FAERS Safety Report 7403111-1 (Version None)
Quarter: 2011Q1

REPORT INFORMATION
  Report Type: 
  Country: None (occurrence: None)
  Receive Date: 20110331
  Receipt Date: 20110316
  Transmission Date: 20110831
  Serious: No
  Sender: FDA-Public Use
  Company Number: SP1201100068

PATIENT
  Sex: Female

DRUGS (1)
  1. AMITIZA [Suspect]
     Indication: CONSTIPATION
     Dosage: 24 MCG, BID, ORAL; 24 MCG, QD, ORAL; 8 MCG, BID, ORAL
     Route: 048
     Dates: end: 20110317

REACTIONS (6)
  - DRUG INEFFECTIVE [None]
  - GASTROINTESTINAL PAIN [None]
  - CONDITION AGGRAVATED [None]
  - FLATULENCE [None]
  - DIARRHOEA [None]
  - DYSPNOEA [None]
